FAERS Safety Report 15942201 (Version 3)
Quarter: 2019Q1

REPORT INFORMATION
  Report Type: Spontaneous
  Country: CA (occurrence: CA)
  Receive Date: 20190210
  Receipt Date: 20190329
  Transmission Date: 20190417
  Serious: Yes (Other)
  Sender: FDA-Public Use
  Company Number: CA-CELLTRION INC.-2019CA018555

PATIENT

DRUGS (7)
  1. CALCIUM [Concomitant]
     Active Substance: CALCIUM
     Dosage: UNK
  2. INFLECTRA [Suspect]
     Active Substance: INFLIXIMAB-DYYB
     Indication: COLITIS ULCERATIVE
     Dosage: 5 MG/KG, EVERY 0 WEEKS
     Route: 042
     Dates: start: 20190117, end: 20190117
  3. INFLECTRA [Suspect]
     Active Substance: INFLIXIMAB-DYYB
     Dosage: 10 MG/KG, EVERY 1 AND 2 WEEKS AND THEN 8 WEEKS
     Route: 042
     Dates: start: 20190124
  4. INFLECTRA [Suspect]
     Active Substance: INFLIXIMAB-DYYB
     Dosage: 10 MG/KG
     Route: 042
     Dates: start: 20190221
  5. VITAMIN D [Concomitant]
     Active Substance: CHOLECALCIFEROL
     Dosage: UNK
  6. INFLECTRA [Suspect]
     Active Substance: INFLIXIMAB-DYYB
     Dosage: 10 MG/KG, CYCLIC (EVERY 4 WEEKS)
     Route: 065
  7. PREDNISONE. [Concomitant]
     Active Substance: PREDNISONE
     Dosage: UNK
     Dates: start: 20181220

REACTIONS (8)
  - Clostridium difficile infection [Unknown]
  - Weight increased [Unknown]
  - Hyperhidrosis [Unknown]
  - Product use issue [Unknown]
  - Tremor [Unknown]
  - C-reactive protein increased [Unknown]
  - Feeling abnormal [Unknown]
  - Off label use [Unknown]

NARRATIVE: CASE EVENT DATE: 20190124
